FAERS Safety Report 9168964 (Version 1)
Quarter: 2013Q1

REPORT INFORMATION
  Report Type: Spontaneous
  Country: US (occurrence: None)
  Receive Date: 20130314
  Receipt Date: 20130314
  Transmission Date: 20140127
  Serious: Yes (Hospitalization)
  Sender: FDA-Public Use
  Company Number: None

PATIENT
  Age: 63 Year
  Sex: Male
  Weight: 131.8 kg

DRUGS (1)
  1. MORPHINE [Suspect]
     Indication: SURGERY
     Route: 042
     Dates: start: 20130301, end: 20130303

REACTIONS (8)
  - Confusional state [None]
  - Agitation [None]
  - Hallucination [None]
  - Disorientation [None]
  - Paranoia [None]
  - Aggression [None]
  - Aggression [None]
  - Delirium [None]
